FAERS Safety Report 11346839 (Version 1)
Quarter: 2015Q3

REPORT INFORMATION
  Report Type: Spontaneous
  Country: US (occurrence: US)
  Receive Date: 20150803
  Receipt Date: 20150803
  Transmission Date: 20151125
  Serious: No
  Sender: FDA-Public Use
  Company Number: US-ELI_LILLY_AND_COMPANY-US201101003262

PATIENT
  Sex: Female

DRUGS (2)
  1. ZOLOFT [Concomitant]
     Active Substance: SERTRALINE HYDROCHLORIDE
  2. ZYPREXA ZYDIS [Suspect]
     Active Substance: OLANZAPINE
     Indication: AGITATED DEPRESSION
     Dosage: 30 MG, DAILY (1/D)
     Dates: start: 201012

REACTIONS (6)
  - Off label use [Unknown]
  - Confusional state [Unknown]
  - Menstrual disorder [Unknown]
  - Lethargy [Unknown]
  - Mental impairment [Unknown]
  - Prescribed overdose [Unknown]

NARRATIVE: CASE EVENT DATE: 201012
